FAERS Safety Report 17924830 (Version 1)
Quarter: 2020Q2

REPORT INFORMATION
  Report Type: Spontaneous
  Country: US (occurrence: US)
  Receive Date: 20200622
  Receipt Date: 20200622
  Transmission Date: 20200714
  Serious: No
  Sender: FDA-Public Use
  Company Number: US-009507513-2006USA006058

PATIENT
  Age: 29 Year
  Sex: Female

DRUGS (2)
  1. NEXPLANON [Suspect]
     Active Substance: ETONOGESTREL
     Indication: CONTRACEPTION
     Dosage: ONE ROD EVERY 3 YEARS
     Route: 059
     Dates: start: 201705, end: 202005
  2. NEXPLANON [Suspect]
     Active Substance: ETONOGESTREL
     Indication: CONTRACEPTION
     Dosage: ONE ROD EVERY 3 YEARS) INNER LEFT ARM
     Dates: start: 202005

REACTIONS (9)
  - Menorrhagia [Not Recovered/Not Resolved]
  - Complication of device removal [Not Recovered/Not Resolved]
  - Anxiety [Not Recovered/Not Resolved]
  - Hypoaesthesia [Not Recovered/Not Resolved]
  - Device issue [Not Recovered/Not Resolved]
  - Mood swings [Not Recovered/Not Resolved]
  - Menorrhagia [Not Recovered/Not Resolved]
  - Depression [Not Recovered/Not Resolved]
  - Complication associated with device [Recovered/Resolved]

NARRATIVE: CASE EVENT DATE: 2017
